FAERS Safety Report 8558705-7 (Version None)
Quarter: 2012Q3

REPORT INFORMATION
  Report Type: 
  Country: None (occurrence: None)
  Receive Date: 20120801
  Receipt Date: 20120724
  Transmission Date: 20120928
  Serious: Yes (Death)
  Sender: FDA-Public Use
  Company Number: JP-FRI-1000037440

PATIENT
  Age: 77 Year
  Sex: Female

DRUGS (6)
  1. OLMESARTAN MEDOXOMIL [Concomitant]
  2. MEMANTINE HCL [Suspect]
     Indication: DEMENTIA ALZHEIMER'S TYPE
     Dosage: 5 MG
     Route: 048
     Dates: start: 20120522
  3. ARICEPT [Concomitant]
  4. CONIEL [Concomitant]
  5. ALENDRONATE SODIUM [Concomitant]
  6. OPALMON [Concomitant]

REACTIONS (1)
  - DEATH [None]
